FAERS Safety Report 21117662 (Version 1)
Quarter: 2022Q3

REPORT INFORMATION
  Report Type: Spontaneous
  Country: US (occurrence: US)
  Receive Date: 20220722
  Receipt Date: 20220722
  Transmission Date: 20221027
  Serious: Yes (Hospitalization, Other)
  Sender: FDA-Public Use
  Company Number: US-AMGEN-USASP2022122624

PATIENT
  Age: 71 Year
  Sex: Female

DRUGS (2)
  1. FILGRASTIM [Suspect]
     Active Substance: FILGRASTIM
     Indication: Prophylaxis
     Dosage: UNK
     Route: 065
     Dates: start: 2017
  2. ETOPOSIDE [Concomitant]
     Active Substance: ETOPOSIDE
     Dosage: 50 MILLIGRAM, QD
     Route: 048
     Dates: start: 2017

REACTIONS (3)
  - Spinal cord oedema [Unknown]
  - Extradural neoplasm [Unknown]
  - Metastases to meninges [Unknown]

NARRATIVE: CASE EVENT DATE: 20180101
